FAERS Safety Report 17362091 (Version 4)
Quarter: 2020Q1

REPORT INFORMATION
  Report Type: Spontaneous
  Country: US (occurrence: US)
  Receive Date: 20200203
  Receipt Date: 20200311
  Transmission Date: 20200409
  Serious: Yes (Hospitalization)
  Sender: FDA-Public Use
  Company Number: US-PFIZER INC-2020043190

PATIENT
  Age: 76 Year

DRUGS (1)
  1. PREMARIN [Suspect]
     Active Substance: ESTROGENS, CONJUGATED
     Indication: VAGINAL HAEMORRHAGE
     Dosage: UNK

REACTIONS (8)
  - Eye disorder [Unknown]
  - Product use in unapproved indication [Unknown]
  - Back disorder [Unknown]
  - Off label use [Unknown]
  - Cardiac disorder [Unknown]
  - Gait disturbance [Unknown]
  - Pain [Unknown]
  - Malaise [Unknown]
